FAERS Safety Report 15759358 (Version 1)
Quarter: 2018Q4

REPORT INFORMATION
  Report Type: Other
  Country: ES (occurrence: ES)
  Receive Date: 20181226
  Receipt Date: 20181226
  Transmission Date: 20190205
  Serious: Yes (Other)
  Sender: FDA-Public Use
  Company Number: ES-APOTEX-2018AP027829

PATIENT
  Age: 83 Year
  Sex: Female

DRUGS (17)
  1. TAPENTADOL [Concomitant]
     Active Substance: TAPENTADOL
     Indication: OSTEOARTHRITIS
     Dosage: 1 DF, BID
     Route: 048
     Dates: start: 20180927
  2. ACIDO ACETIL SALICILICO [Concomitant]
     Active Substance: ASPIRIN
     Indication: DISEASE RISK FACTOR
     Dosage: 1 DF, QD
     Route: 048
     Dates: start: 20120320
  3. ALPRAZOLAM 1 A PHARMA [Concomitant]
     Indication: PRODUCT USED FOR UNKNOWN INDICATION
     Dosage: 1 DF, TID
     Route: 054
     Dates: start: 20110506
  4. TRYPTIZOL [Concomitant]
     Active Substance: AMITRIPTYLINE HYDROCHLORIDE
     Indication: PLASMA CELL MYELOMA
     Dosage: 1 DF, QD
     Route: 048
     Dates: start: 20180119
  5. FOSTER                             /00500401/ [Concomitant]
     Active Substance: PIROXICAM
     Indication: ASTHMA
     Dosage: 1 DF, BID, 1 PUFF C/12 H
     Route: 055
     Dates: start: 20120124
  6. VENLAFAXIN [Concomitant]
     Active Substance: VENLAFAXINE HYDROCHLORIDE
     Indication: PERSISTENT DEPRESSIVE DISORDER
     Dosage: 1 DF, BID
     Route: 048
     Dates: start: 20110314
  7. EUTIROX [Concomitant]
     Active Substance: LEVOTHYROXINE SODIUM
     Indication: HYPOTHYROIDISM
     Dosage: 1 DF, QD
     Route: 048
     Dates: start: 20120125
  8. CALCIUM +D                         /00944201/ [Concomitant]
     Active Substance: CALCIUM CARBONATE\CHOLECALCIFEROL
     Indication: PLASMA CELL MYELOMA
     Dosage: 1 DF, QD
     Route: 048
     Dates: start: 20171005
  9. QUETIAPINE. [Suspect]
     Active Substance: QUETIAPINE
     Indication: PERSISTENT DEPRESSIVE DISORDER
     Dosage: 1 DF, QD
     Route: 065
     Dates: start: 20180903, end: 20181003
  10. PANTOPRAZOL                        /01263201/ [Concomitant]
     Active Substance: PANTOPRAZOLE
     Indication: GASTRITIS
     Dosage: 1 DF, QD
     Route: 048
     Dates: start: 20151126
  11. ATROVENT [Concomitant]
     Active Substance: IPRATROPIUM BROMIDE
     Indication: ASTHMA
     Dosage: 40 ?G, UNK
     Route: 055
     Dates: start: 20180413
  12. CANDESAR [Concomitant]
     Indication: PRODUCT USED FOR UNKNOWN INDICATION
     Dosage: 1 DF, QD
     Route: 048
     Dates: start: 20111108
  13. LATANOPROST. [Concomitant]
     Active Substance: LATANOPROST
     Indication: CATARACT
     Dosage: 1 DF, QD
     Route: 047
     Dates: start: 20120124
  14. PREGABALINA [Concomitant]
     Active Substance: PREGABALIN
     Indication: CERVICOBRACHIAL SYNDROME
     Dosage: 1 DF, UNK
     Route: 048
     Dates: start: 20180202
  15. PARACETAMOL [Concomitant]
     Active Substance: ACETAMINOPHEN
     Indication: PLASMA CELL MYELOMA
     Dosage: 1 DF, TID
     Route: 048
     Dates: start: 20180118
  16. LORMETAZEPAM [Concomitant]
     Active Substance: LORMETAZEPAM
     Indication: CEREBRAL ISCHAEMIA
     Dosage: 1 DF, QD
     Route: 048
     Dates: start: 20170515
  17. CETIRIZIN [Concomitant]
     Active Substance: CETIRIZINE HYDROCHLORIDE
     Indication: CEREBRAL ISCHAEMIA
     Dosage: 1 DF, QD
     Route: 048
     Dates: start: 20120704

REACTIONS (2)
  - Oral mucosal erythema [Recovered/Resolved]
  - Pharyngeal enanthema [Recovered/Resolved]

NARRATIVE: CASE EVENT DATE: 20180927
